FAERS Safety Report 13226876 (Version 6)
Quarter: 2019Q2

REPORT INFORMATION
  Report Type: Spontaneous
  Country: US (occurrence: US)
  Receive Date: 20170213
  Receipt Date: 20190408
  Transmission Date: 20190711
  Serious: Yes (Hospitalization, Other)
  Sender: FDA-Public Use
  Company Number: US-SMITH AND NEPHEW, INC-2017SMT00079

PATIENT
  Age: 86 Year
  Sex: Female
  Weight: 70.75 kg

DRUGS (12)
  1. UNSPECIFIED OTC SUPPLEMENTS [Concomitant]
  2. REGRANEX [Suspect]
     Active Substance: BECAPLERMIN
     Route: 061
  3. REGRANEX [Suspect]
     Active Substance: BECAPLERMIN
     Dosage: PROPER AMOUNT TO THE WOUND, 3X/WEEK
     Route: 061
     Dates: start: 2018
  4. UNSPECIFIED OTHER MEDICATIONS [Concomitant]
     Active Substance: UNSPECIFIED INGREDIENT
  5. UNSPECIFIED BLOOD PRESSURE MEDICATION [Concomitant]
     Active Substance: UNSPECIFIED INGREDIENT
  6. LEVOTHYROXINE. [Concomitant]
     Active Substance: LEVOTHYROXINE
  7. REGRANEX [Suspect]
     Active Substance: BECAPLERMIN
     Indication: DIABETIC FOOT
     Route: 061
     Dates: start: 2016
  8. GABAPENTIN. [Concomitant]
     Active Substance: GABAPENTIN
  9. ISOSORBIDE. [Concomitant]
     Active Substance: ISOSORBIDE
  10. UNSPECIFIED CHOLESTEROL PILL [Concomitant]
  11. LANTUS [Concomitant]
     Active Substance: INSULIN GLARGINE
  12. HUMALOG [Concomitant]
     Active Substance: INSULIN LISPRO

REACTIONS (21)
  - Osteomyelitis [Not Recovered/Not Resolved]
  - Impaired healing [Not Recovered/Not Resolved]
  - Hyperkeratosis [Not Recovered/Not Resolved]
  - Venous occlusion [Not Recovered/Not Resolved]
  - Nail discolouration [Not Recovered/Not Resolved]
  - Blood potassium [Recovered/Resolved]
  - Blood glucose increased [Recovered/Resolved]
  - Bacteraemia [Not Recovered/Not Resolved]
  - Amputation [Recovered/Resolved with Sequelae]
  - Poor peripheral circulation [Not Recovered/Not Resolved]
  - Arthralgia [Not Recovered/Not Resolved]
  - Scar [Not Recovered/Not Resolved]
  - Peripheral vascular disorder [Unknown]
  - Toe amputation [Recovered/Resolved with Sequelae]
  - Onychomadesis [Not Recovered/Not Resolved]
  - Scab [Not Recovered/Not Resolved]
  - Drug ineffective [Not Recovered/Not Resolved]
  - Inappropriate schedule of product administration [Not Recovered/Not Resolved]
  - Pain in extremity [Not Recovered/Not Resolved]
  - Wound complication [Not Recovered/Not Resolved]
  - Wound secretion [Not Recovered/Not Resolved]

NARRATIVE: CASE EVENT DATE: 201701
